FAERS Safety Report 5641361-5 (Version None)
Quarter: 2008Q1

REPORT INFORMATION
  Report Type: 
  Country: None (occurrence: None)
  Receive Date: 20080227
  Receipt Date: 20070628
  Transmission Date: 20080703
  Serious: No
  Sender: FDA-Public Use
  Company Number: A0660435A

PATIENT
  Age: 54 Year
  Sex: Female

DRUGS (2)
  1. NICORETTE (MINT) [Suspect]
  2. NICORETTE [Suspect]

REACTIONS (5)
  - AMNESIA [None]
  - ARTHRALGIA [None]
  - INTENTIONAL DRUG MISUSE [None]
  - MYALGIA [None]
  - SLEEP DISORDER [None]
